FAERS Safety Report 19430630 (Version 2)
Quarter: 2021Q4

REPORT INFORMATION
  Report Type: Spontaneous
  Country: CA (occurrence: CA)
  Receive Date: 20210617
  Receipt Date: 20211102
  Transmission Date: 20220303
  Serious: Yes (Death)
  Sender: FDA-Public Use
  Company Number: CA-IGSA-BIG0014842

PATIENT
  Age: 72 Year
  Sex: Male
  Weight: 82 kg

DRUGS (36)
  1. GAMUNEX [Suspect]
     Active Substance: HUMAN IMMUNOGLOBULIN G
     Indication: Immune thrombocytopenia
     Dosage: 80.0 GRAM, SINGLE
     Route: 042
  2. IGIVNEX [Suspect]
     Active Substance: HUMAN IMMUNOGLOBULIN G
     Indication: Immune thrombocytopenia
     Dosage: 80 GRAM, SINGLE
     Route: 042
     Dates: start: 20210528
  3. HUMAN IMMUNOGLOBULIN G [Suspect]
     Active Substance: HUMAN IMMUNOGLOBULIN G
     Indication: Immune thrombocytopenia
     Dosage: 80.0 GRAM
     Route: 042
  4. ERYTHROPOIETIN [Concomitant]
     Active Substance: ERYTHROPOIETIN
  5. ACETAMINOPHEN [Concomitant]
     Active Substance: ACETAMINOPHEN
  6. ALLOPURINOL [Concomitant]
     Active Substance: ALLOPURINOL
  7. CALCITRIOL [Concomitant]
     Active Substance: CALCITRIOL
  8. CALCIUM [Concomitant]
     Active Substance: CALCIUM
  9. CITALOPRAM [Concomitant]
     Active Substance: CITALOPRAM HYDROBROMIDE
  10. CALCIUM CITRATE\CHOLECALCIFEROL [Concomitant]
     Active Substance: CALCIUM CITRATE\CHOLECALCIFEROL
  11. DENOSUMAB [Concomitant]
     Active Substance: DENOSUMAB
  12. DIPHENHYDRAMINE [Concomitant]
     Active Substance: DIPHENHYDRAMINE
  13. ATROPINE\DIPHENOXYLATE [Concomitant]
     Active Substance: ATROPINE\DIPHENOXYLATE
  14. EZETIMIBE [Concomitant]
     Active Substance: EZETIMIBE
  15. FOLIC ACID [Concomitant]
     Active Substance: FOLIC ACID
  16. HYDROCORTISONE [Concomitant]
     Active Substance: HYDROCORTISONE
  17. LOPERAMIDE [Concomitant]
     Active Substance: LOPERAMIDE
  18. MAGNESIUM [Concomitant]
     Active Substance: MAGNESIUM
  19. METAMUCIL THERAPY FOR REGULARITY [Concomitant]
     Active Substance: PSYLLIUM HUSK
  20. METOPROLOL [Concomitant]
     Active Substance: METOPROLOL
  21. VITAMINS [Concomitant]
     Active Substance: VITAMINS
  22. NYSTATIN [Concomitant]
     Active Substance: NYSTATIN
  23. OMEPRAZOLE [Concomitant]
     Active Substance: OMEPRAZOLE
  24. PHOSPHORUS [Concomitant]
     Active Substance: PHOSPHORUS
  25. POTASSIUM [Concomitant]
     Active Substance: POTASSIUM
  26. PREDNISONE [Concomitant]
     Active Substance: PREDNISONE
  27. SIROLIMUS [Concomitant]
     Active Substance: SIROLIMUS
  28. SODIUM BICARBONATE [Concomitant]
     Active Substance: SODIUM BICARBONATE
  29. HYDROMORPHONE [Concomitant]
     Active Substance: HYDROMORPHONE
  30. LIDOCAINE [Concomitant]
     Active Substance: LIDOCAINE
     Route: 048
  31. PLATELETS [Concomitant]
     Active Substance: HUMAN PLATELET, ALLOGENIC
  32. EPREX [Concomitant]
     Active Substance: ERYTHROPOIETIN
  33. LOMOTIL [Concomitant]
     Active Substance: ATROPINE SULFATE\DIPHENOXYLATE HYDROCHLORIDE
  34. ATROPINE SULFATE\DIPHENOXYLATE HYDROCHLORIDE [Concomitant]
     Active Substance: ATROPINE SULFATE\DIPHENOXYLATE HYDROCHLORIDE
  35. PLANTAGO [PLANTAGO AFRA] [Concomitant]
  36. VITAMINS NOS [Concomitant]
     Active Substance: VITAMINS

REACTIONS (5)
  - Dyspnoea [Fatal]
  - Anxiety [Fatal]
  - Hypervolaemia [Fatal]
  - Hypoxia [Fatal]
  - Restlessness [Fatal]

NARRATIVE: CASE EVENT DATE: 20210528
